FAERS Safety Report 16556766 (Version 1)
Quarter: 2019Q3

REPORT INFORMATION
  Report Type: Report from Study
  Country: US (occurrence: US)
  Receive Date: 20190711
  Receipt Date: 20190711
  Transmission Date: 20191004
  Serious: Yes (Other)
  Sender: FDA-Public Use
  Company Number: US-JNJFOC-20190629552

PATIENT
  Age: 61 Year
  Sex: Male

DRUGS (4)
  1. IMBRUVICA [Suspect]
     Active Substance: IBRUTINIB
     Indication: B-CELL SMALL LYMPHOCYTIC LYMPHOMA
     Dosage: 280 MG, QD
     Route: 048
     Dates: start: 20180221
  2. TYLENOL [Concomitant]
     Active Substance: ACETAMINOPHEN
  3. LISINOPRIL. [Concomitant]
     Active Substance: LISINOPRIL
  4. IMBRUVICA [Suspect]
     Active Substance: IBRUTINIB
     Indication: B-CELL SMALL LYMPHOCYTIC LYMPHOMA
     Route: 048
     Dates: start: 20180426

REACTIONS (3)
  - Off label use [Unknown]
  - Incorrect dose administered [Unknown]
  - Benign neoplasm [Unknown]

NARRATIVE: CASE EVENT DATE: 20180221
